FAERS Safety Report 7755030-9 (Version None)
Quarter: 2011Q3

REPORT INFORMATION
  Report Type: 
  Country: None (occurrence: None)
  Receive Date: 20110916
  Receipt Date: 20110908
  Transmission Date: 20111222
  Serious: Yes (Life-Threatening)
  Sender: FDA-Public Use
  Company Number: NL-AMGEN-NLDSP2011046328

PATIENT
  Age: 79 Year
  Sex: Male

DRUGS (3)
  1. PREDNISOLONE [Concomitant]
     Dosage: 30 MG, UNK
  2. ENBREL [Suspect]
     Indication: JUVENILE ARTHRITIS
     Dosage: 50 MG, WEEKLY
  3. NITROGLYCERIN SPRAY [Concomitant]
     Dosage: UNK

REACTIONS (2)
  - LUNG NEOPLASM MALIGNANT [None]
  - DIZZINESS [None]
